FAERS Safety Report 8306223-3 (Version None)
Quarter: 2012Q2

REPORT INFORMATION
  Report Type: 
  Country: None (occurrence: None)
  Receive Date: 20120423
  Receipt Date: 20120418
  Transmission Date: 20120825
  Serious: Yes (Other)
  Sender: FDA-Public Use
  Company Number: FR-ROCHE-1061119

PATIENT
  Sex: Female

DRUGS (3)
  1. AVASTIN [Suspect]
     Indication: BREAST CANCER
     Route: 042
     Dates: start: 20120109, end: 20120220
  2. DOCETAXEL (NON-ROCHE/NON-COMPARATOR) [Suspect]
     Indication: BREAST CANCER
     Dates: start: 20111220
  3. PACLITAXEL [Concomitant]

REACTIONS (2)
  - EJECTION FRACTION DECREASED [None]
  - BUNDLE BRANCH BLOCK [None]
